FAERS Safety Report 23521291 (Version 1)
Quarter: 2024Q1

REPORT INFORMATION
  Report Type: Spontaneous
  Country: CA (occurrence: CA)
  Receive Date: 20240214
  Receipt Date: 20240214
  Transmission Date: 20240409
  Serious: Yes (Hospitalization)
  Sender: FDA-Public Use
  Company Number: CA-AstraZeneca-2024A032443

PATIENT
  Sex: Female
  Weight: 47 kg

DRUGS (1)
  1. TRASTUZUMAB DERUXTECAN [Suspect]
     Active Substance: TRASTUZUMAB DERUXTECAN
     Indication: Breast cancer female
     Dosage: 210.3 MG, ONCE EVERY 3 WK
     Route: 042

REACTIONS (1)
  - Clostridium difficile infection [Not Recovered/Not Resolved]
